FAERS Safety Report 10057303 (Version 1)
Quarter: 2014Q2

REPORT INFORMATION
  Report Type: Report from Study
  Country: US (occurrence: US)
  Receive Date: 20140403
  Receipt Date: 20140403
  Transmission Date: 20141212
  Serious: Yes (Hospitalization)
  Sender: FDA-Public Use
  Company Number: US-ASTRAZENECA-2014SE22181

PATIENT
  Age: 44 Year
  Sex: Male
  Weight: 65.3 kg

DRUGS (6)
  1. CRESTOR [Suspect]
     Indication: CARDIOVASCULAR EVENT PROPHYLAXIS
     Route: 048
  2. NORVASC [Concomitant]
     Route: 048
  3. ASPIRIN [Concomitant]
     Route: 048
  4. LOPRESSOR [Concomitant]
     Route: 048
  5. PROTONIX [Concomitant]
     Route: 048
  6. EFFIENT [Concomitant]
     Route: 048

REACTIONS (1)
  - Chest pain [Recovered/Resolved]
